FAERS Safety Report 12329690 (Version 2)
Quarter: 2016Q2

REPORT INFORMATION
  Report Type: Report from Study
  Country: US (occurrence: US)
  Receive Date: 20160503
  Receipt Date: 20160519
  Transmission Date: 20160815
  Serious: Yes (Hospitalization)
  Sender: FDA-Public Use
  Company Number: US-ABBVIE-16P-163-1619505-00

PATIENT
  Age: 85 Year
  Sex: Female

DRUGS (1)
  1. DUOPA [Suspect]
     Active Substance: CARBIDOPA\LEVODOPA
     Indication: PARKINSON^S DISEASE
     Route: 050
     Dates: start: 20160301

REACTIONS (4)
  - Oxygen saturation decreased [Unknown]
  - Blood pressure increased [Unknown]
  - Pneumonia aspiration [Unknown]
  - Device connection issue [Unknown]

NARRATIVE: CASE EVENT DATE: 201603
